FAERS Safety Report 12090721 (Version 2)
Quarter: 2016Q2

REPORT INFORMATION
  Report Type: Spontaneous
  Country: US (occurrence: US)
  Receive Date: 20160218
  Receipt Date: 20160418
  Transmission Date: 20160815
  Serious: No
  Sender: FDA-Public Use
  Company Number: US-BAYER-2016-031902

PATIENT
  Age: 71 Year
  Sex: Female
  Weight: 61.22 kg

DRUGS (1)
  1. ALEVE [Suspect]
     Active Substance: NAPROXEN SODIUM
     Indication: BACK PAIN
     Dosage: 2 DF, PRN
     Route: 048
     Dates: start: 201501

REACTIONS (3)
  - Product package associated injury [Recovered/Resolved]
  - Product packaging issue [None]
  - Product closure removal difficult [None]

NARRATIVE: CASE EVENT DATE: 20160216
